FAERS Safety Report 4706828-2 (Version None)
Quarter: 2005Q3

REPORT INFORMATION
  Report Type: 
  Country: None (occurrence: None)
  Receive Date: 20050705
  Receipt Date: 20050620
  Transmission Date: 20060218
  Serious: Yes (Other)
  Sender: FDA-Public Use
  Company Number: 2005090825

PATIENT
  Age: 76 Year
  Sex: Female
  Weight: 65.7716 kg

DRUGS (3)
  1. DETROL LA [Suspect]
     Indication: HYPERTONIC BLADDER
     Dosage: 4 MG (4 MG, 1 IN 1 D) ORAL
     Route: 048
     Dates: start: 20041201
  2. LEXAPRO [Concomitant]
  3. METOPROLOL [Concomitant]

REACTIONS (11)
  - ABDOMINAL DISTENSION [None]
  - CATARACT [None]
  - CONFUSIONAL STATE [None]
  - CONSTIPATION [None]
  - CYSTITIS [None]
  - EYE SWELLING [None]
  - FATIGUE [None]
  - GLAUCOMA [None]
  - INCREASED UPPER AIRWAY SECRETION [None]
  - OCULAR HYPERAEMIA [None]
  - SOMNOLENCE [None]
